FAERS Safety Report 8460180-8 (Version None)
Quarter: 2012Q2

REPORT INFORMATION
  Report Type: 
  Country: None (occurrence: None)
  Receive Date: 20120622
  Receipt Date: 20120613
  Transmission Date: 20120825
  Serious: Yes (Other)
  Sender: FDA-Public Use
  Company Number: US-ASTRAZENECA-2010SE39534

PATIENT
  Age: 74 Year
  Sex: Female
  Weight: 79.4 kg

DRUGS (7)
  1. SEROQUEL [Suspect]
     Indication: BIPOLAR DISORDER
     Route: 048
     Dates: start: 20070101, end: 20100601
  2. SEROQUEL [Suspect]
     Route: 048
  3. SEROQUEL [Suspect]
     Indication: DEPRESSION
     Route: 048
     Dates: start: 20070101, end: 20100601
  4. PAXIL [Concomitant]
     Indication: ACTIVITIES OF DAILY LIVING IMPAIRED
  5. BUSPAR [Concomitant]
  6. SEROQUEL [Suspect]
     Route: 048
  7. RESTORIL [Concomitant]
     Indication: SLEEP DISORDER

REACTIONS (7)
  - DRUG DOSE OMISSION [None]
  - NEOPLASM MALIGNANT [None]
  - IMPAIRED DRIVING ABILITY [None]
  - PANIC ATTACK [None]
  - DEPRESSION [None]
  - INSOMNIA [None]
  - MALAISE [None]
